FAERS Safety Report 4757110-9 (Version None)
Quarter: 2005Q3

REPORT INFORMATION
  Report Type: 
  Country: None (occurrence: None)
  Receive Date: 20050829
  Receipt Date: 20050817
  Transmission Date: 20060218
  Serious: Yes (Other)
  Sender: FDA-Public Use
  Company Number: 2005117170

PATIENT
  Sex: Female

DRUGS (6)
  1. AROMASIN [Suspect]
     Indication: BREAST CANCER
     Dosage: 25 MG (25 MG, 1 IN 1 D), ORAL
     Route: 048
     Dates: start: 20050305
  2. COUMADIN [Concomitant]
  3. FOSAMAX [Concomitant]
  4. ELTROXIN (LEVOTHYROXINE SODIUM) [Concomitant]
  5. LASIX (FUROSEMIDE0 [Concomitant]
  6. POTASSIUM CHLORIDE [Concomitant]

REACTIONS (10)
  - CELLULITIS [None]
  - COUGH [None]
  - DYSPNOEA [None]
  - LYMPHOEDEMA [None]
  - OEDEMA [None]
  - PHARYNGITIS [None]
  - PNEUMONIA [None]
  - PRURITUS [None]
  - RHINITIS [None]
  - SINUSITIS [None]
